FAERS Safety Report 15112148 (Version 1)
Quarter: 2018Q3

REPORT INFORMATION
  Report Type: Report from Study
  Country: ES (occurrence: ES)
  Receive Date: 20180705
  Receipt Date: 20180705
  Transmission Date: 20181010
  Serious: Yes (Hospitalization, Other)
  Sender: FDA-Public Use
  Company Number: ES-CELGENEUS-ESP-20171210641

PATIENT
  Age: 61 Year
  Sex: Male
  Weight: 60 kg

DRUGS (11)
  1. LEVOFLOXACIN. [Concomitant]
     Active Substance: LEVOFLOXACIN
     Indication: DYSPNOEA
     Route: 065
     Dates: start: 20171217
  2. REVLIMID [Suspect]
     Active Substance: LENALIDOMIDE
     Indication: PLASMA CELL MYELOMA
     Route: 048
     Dates: start: 20160315, end: 20171214
  3. DEXAMETHASONE. [Suspect]
     Active Substance: DEXAMETHASONE
     Indication: PLASMA CELL MYELOMA
     Route: 048
     Dates: start: 20160315, end: 20171205
  4. PARACETAMOL [Concomitant]
     Active Substance: ACETAMINOPHEN
     Indication: PAIN
     Dosage: 1 GRAM
     Route: 065
     Dates: start: 20171124
  5. OMEPRAZOLE. [Concomitant]
     Active Substance: OMEPRAZOLE
     Indication: PROPHYLAXIS
     Dosage: 20 MILLIGRAM
     Route: 065
     Dates: start: 20171217
  6. ACICLOVIR [Concomitant]
     Active Substance: ACYCLOVIR
     Indication: PROPHYLAXIS
     Dosage: 800 MILLIGRAM
     Route: 065
     Dates: start: 20171217
  7. TORASEMIDA [Concomitant]
     Active Substance: TORSEMIDE
     Indication: DIURETIC THERAPY
     Dosage: 5 MILLIGRAM
     Route: 065
     Dates: start: 20170321
  8. CALCIUM SANDOZ [Concomitant]
     Active Substance: CALCIUM
     Indication: PROPHYLAXIS
     Dosage: 600 MILLIGRAM
     Route: 065
     Dates: start: 20171217
  9. AUGMENTIN [Concomitant]
     Active Substance: AMOXICILLIN\CLAVULANATE POTASSIUM
     Indication: DYSPNOEA
     Route: 065
     Dates: start: 20171209, end: 20171217
  10. SEPTRIN FORTE [Concomitant]
     Active Substance: SULFAMETHOXAZOLE\TRIMETHOPRIM
     Indication: PROPHYLAXIS
     Dosage: 1600 MILLIGRAM
     Route: 065
     Dates: start: 20171217
  11. VELCADE [Concomitant]
     Active Substance: BORTEZOMIB
     Indication: PLASMA CELL MYELOMA
     Route: 065

REACTIONS (2)
  - Hodgkin^s disease [Not Recovered/Not Resolved]
  - Deep vein thrombosis [Recovered/Resolved]

NARRATIVE: CASE EVENT DATE: 20171223
